FAERS Safety Report 4655605-X (Version None)
Quarter: 2005Q2

REPORT INFORMATION
  Report Type: 
  Country: None (occurrence: None)
  Receive Date: 20050505
  Receipt Date: 20050426
  Transmission Date: 20051028
  Serious: Yes (Life-Threatening, Hospitalization)
  Sender: FDA-Public Use
  Company Number: 0500006EN0010P

PATIENT
  Age: 7 Year
  Sex: Male
  Weight: 30 kg

DRUGS (2)
  1. ADAGEN [Suspect]
     Indication: ENZYME SUPPLEMENTATION
     Dosage: 375 IU 4 TIMES/WEEK
     Dates: start: 19990101
  2. ADAGEN [Suspect]

REACTIONS (3)
  - MENINGITIS CRYPTOCOCCAL [None]
  - RASH PAPULAR [None]
  - SKIN ULCER [None]
